FAERS Safety Report 25213386 (Version 1)
Quarter: 2025Q2

REPORT INFORMATION
  Report Type: Spontaneous
  Country: PL (occurrence: PL)
  Receive Date: 20250418
  Receipt Date: 20250418
  Transmission Date: 20250717
  Serious: Yes (Death, Life-Threatening, Other)
  Sender: AUROBINDO
  Company Number: PL-MLMSERVICE-20250327-PI459426-00082-1

PATIENT
  Age: 14 Year
  Sex: Female

DRUGS (22)
  1. CARBOPLATIN [Suspect]
     Active Substance: CARBOPLATIN
     Indication: Embryonal rhabdomyosarcoma
     Route: 065
  2. CARBOPLATIN [Suspect]
     Active Substance: CARBOPLATIN
     Indication: Alveolar rhabdomyosarcoma
  3. EPIRUBICIN [Suspect]
     Active Substance: EPIRUBICIN
     Indication: Embryonal rhabdomyosarcoma
     Route: 065
  4. EPIRUBICIN [Suspect]
     Active Substance: EPIRUBICIN
     Indication: Alveolar rhabdomyosarcoma
  5. VINCRISTINE [Suspect]
     Active Substance: VINCRISTINE
     Indication: Embryonal rhabdomyosarcoma
     Route: 065
  6. VINCRISTINE [Suspect]
     Active Substance: VINCRISTINE
     Indication: Alveolar rhabdomyosarcoma
  7. IFOSFAMIDE [Suspect]
     Active Substance: IFOSFAMIDE
     Indication: Embryonal rhabdomyosarcoma
     Route: 065
  8. IFOSFAMIDE [Suspect]
     Active Substance: IFOSFAMIDE
     Indication: Alveolar rhabdomyosarcoma
  9. ACTINOMYCIN D [Suspect]
     Active Substance: DACTINOMYCIN
     Indication: Embryonal rhabdomyosarcoma
     Route: 065
  10. ACTINOMYCIN D [Suspect]
     Active Substance: DACTINOMYCIN
     Indication: Alveolar rhabdomyosarcoma
  11. ETOPOSIDE [Suspect]
     Active Substance: ETOPOSIDE
     Indication: Embryonal rhabdomyosarcoma
     Route: 065
  12. ETOPOSIDE [Suspect]
     Active Substance: ETOPOSIDE
     Indication: Alveolar rhabdomyosarcoma
  13. TOPOTECAN [Suspect]
     Active Substance: TOPOTECAN HYDROCHLORIDE
     Indication: Embryonal rhabdomyosarcoma
     Route: 065
  14. TOPOTECAN [Suspect]
     Active Substance: TOPOTECAN HYDROCHLORIDE
     Indication: Alveolar rhabdomyosarcoma
  15. CISPLATIN [Suspect]
     Active Substance: CISPLATIN
     Indication: Embryonal rhabdomyosarcoma
     Route: 065
  16. CISPLATIN [Suspect]
     Active Substance: CISPLATIN
     Indication: Alveolar rhabdomyosarcoma
  17. ADRIAMYCIN [Suspect]
     Active Substance: DOXORUBICIN HYDROCHLORIDE
     Indication: Embryonal rhabdomyosarcoma
     Route: 065
  18. ADRIAMYCIN [Suspect]
     Active Substance: DOXORUBICIN HYDROCHLORIDE
     Indication: Alveolar rhabdomyosarcoma
  19. CYCLOPHOSPHAMIDE [Suspect]
     Active Substance: CYCLOPHOSPHAMIDE
     Indication: Embryonal rhabdomyosarcoma
     Route: 065
  20. CYCLOPHOSPHAMIDE [Suspect]
     Active Substance: CYCLOPHOSPHAMIDE
     Indication: Alveolar rhabdomyosarcoma
  21. VINBLASTINE [Suspect]
     Active Substance: VINBLASTINE
     Indication: Embryonal rhabdomyosarcoma
     Route: 065
  22. VINBLASTINE [Suspect]
     Active Substance: VINBLASTINE
     Indication: Alveolar rhabdomyosarcoma

REACTIONS (1)
  - Pneumonia fungal [Fatal]
